FAERS Safety Report 20405145 (Version 1)
Quarter: 2022Q1

REPORT INFORMATION
  Report Type: Spontaneous
  Country: US (occurrence: US)
  Receive Date: 20220131
  Receipt Date: 20220131
  Transmission Date: 20220423
  Serious: No
  Sender: FDA-Public Use
  Company Number: US-PFIZER INC-202200028860

PATIENT
  Age: 64 Year
  Sex: Female

DRUGS (1)
  1. XELJANZ XR [Suspect]
     Active Substance: TOFACITINIB CITRATE
     Indication: Rheumatoid arthritis
     Dosage: 11 MG, 1X/DAY
     Route: 048
     Dates: start: 20211031

REACTIONS (6)
  - Drug ineffective [Unknown]
  - Fatigue [Unknown]
  - Joint stiffness [Unknown]
  - Pain [Unknown]
  - Discomfort [Unknown]
  - Depressed mood [Unknown]
